FAERS Safety Report 16540564 (Version 1)
Quarter: 2019Q3

REPORT INFORMATION
  Report Type: Spontaneous
  Country: US (occurrence: US)
  Receive Date: 20190707
  Receipt Date: 20190707
  Transmission Date: 20191004
  Serious: No
  Sender: FDA-Public Use
  Company Number: None

PATIENT
  Age: 64 Year
  Sex: Female
  Weight: 82.35 kg

DRUGS (4)
  1. METFORMIN HCL [Concomitant]
     Active Substance: METFORMIN HYDROCHLORIDE
  2. AMLODIPINE-BENAZEPRI [Concomitant]
  3. ALLERGY NON DROWEY [Concomitant]
  4. EQUATE EYE ALLERGY RELIEF DROPS [Suspect]
     Active Substance: NAPHAZOLINE HYDROCHLORIDE\PHENIRAMINE MALEATE
     Indication: HYPERSENSITIVITY
     Dosage: ?          QUANTITY:2 DROP(S);?
     Route: 047

REACTIONS (4)
  - Instillation site pain [None]
  - Eye irritation [None]
  - Recalled product administered [None]
  - Lacrimation increased [None]
